FAERS Safety Report 6742569-8 (Version None)
Quarter: 2010Q2

REPORT INFORMATION
  Report Type: 
  Country: None (occurrence: None)
  Receive Date: 20100526
  Receipt Date: 20100520
  Transmission Date: 20101027
  Serious: Yes (Disabling)
  Sender: FDA-Public Use
  Company Number: FR-ABBOTT-10P-056-0646204-00

PATIENT
  Age: 74 Year
  Sex: Male

DRUGS (2)
  1. HUMIRA [Suspect]
     Indication: RHEUMATOID ARTHRITIS
     Route: 058
     Dates: start: 20071101, end: 20100301
  2. ARAVA [Suspect]
     Indication: RHEUMATOID ARTHRITIS
     Dates: start: 20071101

REACTIONS (2)
  - DEAFNESS [None]
  - TINNITUS [None]
